FAERS Safety Report 25763497 (Version 1)
Quarter: 2025Q3

REPORT INFORMATION
  Report Type: Spontaneous
  Country: US (occurrence: US)
  Receive Date: 20250905
  Receipt Date: 20250905
  Transmission Date: 20251021
  Serious: No
  Sender: ROCHE
  Company Number: US-ROCHE-10000375815

PATIENT
  Age: 64 Year
  Sex: Female
  Weight: 62.59 kg

DRUGS (3)
  1. ACTEMRA ACTPEN [Suspect]
     Active Substance: TOCILIZUMAB
     Indication: Giant cell arteritis
     Dosage: ACTEMRA 162 MGS INJECTION ONCE A WEEK
     Route: 058
     Dates: start: 20250406
  2. ACTEMRA ACTPEN [Suspect]
     Active Substance: TOCILIZUMAB
     Indication: Polymyalgia rheumatica
  3. LOSARTAN [Concomitant]
     Active Substance: LOSARTAN
     Indication: Hypertension
     Dosage: LOSARTAN 50 MGS1 TABLET BY MOUTH ONCE A DAY
     Route: 048

REACTIONS (3)
  - Wrong technique in device usage process [Unknown]
  - Device use error [Unknown]
  - No adverse event [Unknown]

NARRATIVE: CASE EVENT DATE: 20250824
